FAERS Safety Report 9543217 (Version 2)
Quarter: 2013Q3

REPORT INFORMATION
  Report Type: Spontaneous
  Country: US (occurrence: US)
  Receive Date: 20130923
  Receipt Date: 20130923
  Transmission Date: 20140515
  Serious: Yes (Death, Other)
  Sender: FDA-Public Use
  Company Number: US-NAPPMUNDI-USA-2012-0091719

PATIENT
  Age: 54 Year
  Sex: Female

DRUGS (4)
  1. DILAUDID TABLET [Suspect]
     Indication: DRUG ABUSE
  2. COCAINE [Suspect]
     Indication: SUBSTANCE ABUSE
  3. HEROIN [Suspect]
     Indication: SUBSTANCE ABUSE
  4. BENZODIAZEPINE DERIVATIVES [Suspect]
     Indication: PRODUCT USED FOR UNKNOWN INDICATION

REACTIONS (2)
  - Accidental overdose [Fatal]
  - Substance abuse [Unknown]
